FAERS Safety Report 9467514 (Version 1)
Quarter: 2013Q4

REPORT INFORMATION
  Report Type: Spontaneous
  Country: US (occurrence: None)
  Receive Date: 20130819
  Receipt Date: 20130819
  Transmission Date: 20140711
  Serious: Yes (Other)
  Sender: FDA-Public Use
  Company Number: None

PATIENT
  Age: 77 Year
  Sex: Male
  Weight: 100.6 kg

DRUGS (2)
  1. IPILIMUMAB [Suspect]
     Indication: METASTATIC MALIGNANT MELANOMA
     Dosage: 1006MG  IV  EVERY 3WKS  D3
     Route: 042
     Dates: start: 20130124
  2. CYTOXAN [Suspect]
     Dosage: 650MG  PO  EVERY 3WKS  D1
     Route: 048
     Dates: start: 20130122

REACTIONS (3)
  - Amylase increased [None]
  - Lipase increased [None]
  - Disease progression [None]
